FAERS Safety Report 16490486 (Version 1)
Quarter: 2019Q2

REPORT INFORMATION
  Report Type: Spontaneous
  Country: US (occurrence: US)
  Receive Date: 20190628
  Receipt Date: 20190628
  Transmission Date: 20190711
  Serious: No
  Sender: FDA-Public Use
  Company Number: US-GALDERMA-US19016633

PATIENT
  Age: 82 Year
  Sex: Female

DRUGS (5)
  1. PROACTIV SOLUTION BLACKHEAD DISSOLVING [Concomitant]
     Active Substance: SALICYLIC ACID
     Indication: SKIN INDURATION
     Route: 061
     Dates: start: 20190301, end: 20190305
  2. PROACTIV MD ADAPALENE ACNE TREATMENT [Suspect]
     Active Substance: ADAPALENE
     Indication: SKIN INDURATION
     Dosage: 0.1%
     Route: 061
     Dates: start: 20190301, end: 20190305
  3. PROACTIV GREEN TEA MOISTURIZER [Concomitant]
     Active Substance: COSMETICS
     Indication: SKIN INDURATION
     Route: 061
     Dates: start: 20190301, end: 20190305
  4. PROACTIV MD DAILY OIL CONTROL SPF 30 [Suspect]
     Active Substance: AVOBENZONE\OCTISALATE\OCTOCRYLENE
     Indication: SKIN INDURATION
     Route: 061
     Dates: start: 20190301, end: 20190305
  5. PROACTIV MD DEEP CLEANSING FACE WASH [Concomitant]
     Active Substance: COSMETICS
     Indication: SKIN INDURATION
     Route: 061
     Dates: start: 20190301, end: 20190305

REACTIONS (2)
  - Product use in unapproved indication [Recovered/Resolved]
  - Rash [Recovering/Resolving]

NARRATIVE: CASE EVENT DATE: 20190301
